FAERS Safety Report 9955349 (Version 1)
Quarter: 2014Q1

REPORT INFORMATION
  Report Type: Report from Study
  Country: US (occurrence: US)
  Receive Date: 20140304
  Receipt Date: 20140304
  Transmission Date: 20141002
  Serious: No
  Sender: FDA-Public Use
  Company Number: US-ABBVIE-13P-163-1080244-00

PATIENT
  Age: 46 Year
  Sex: Male

DRUGS (5)
  1. HUMIRA [Suspect]
     Dates: start: 20130203
  2. LORTAB [Concomitant]
     Indication: PAIN
  3. METFORMIN [Concomitant]
     Indication: DIABETES MELLITUS
  4. VALIUM [Concomitant]
     Indication: NERVOUSNESS
  5. HCTZ [Concomitant]
     Indication: BLOOD PRESSURE

REACTIONS (1)
  - Frequent bowel movements [Not Recovered/Not Resolved]
